FAERS Safety Report 4303513-6 (Version None)
Quarter: 2004Q1

REPORT INFORMATION
  Report Type: 
  Country: None (occurrence: None)
  Receive Date: 20040223
  Receipt Date: 20040210
  Transmission Date: 20041129
  Serious: Yes (Other)
  Sender: FDA-Public Use
  Company Number: 2003038834

PATIENT
  Sex: Female
  Weight: 65 kg

DRUGS (9)
  1. ZOLOFT [Suspect]
     Indication: DEPRESSION
     Dates: start: 20000701, end: 20030301
  2. ESTRADIOL [Suspect]
     Indication: DEPRESSION
     Dates: start: 20000301, end: 20020101
  3. PROGESTERONE [Suspect]
     Indication: DEPRESSION
     Dates: start: 20000301, end: 20020101
  4. NICORANDIL (NICORANDIL) [Concomitant]
  5. AMLODIPINE [Concomitant]
  6. FLUINDIONE (FLUINDIONE) [Concomitant]
  7. LEVOTHYROXINE SODIUM [Concomitant]
  8. PERINDOPRIL (PERINDOPRIL) [Concomitant]
  9. BISOPROLOL FUMARATE [Concomitant]

REACTIONS (8)
  - AKINESIA [None]
  - BUNDLE BRANCH BLOCK RIGHT [None]
  - CARDIAC FAILURE [None]
  - CONGESTIVE CARDIOMYOPATHY [None]
  - EJECTION FRACTION DECREASED [None]
  - ELECTROCARDIOGRAM T WAVE INVERSION [None]
  - INTRACARDIAC THROMBUS [None]
  - VENTRICULAR EXTRASYSTOLES [None]
